FAERS Safety Report 14199561 (Version 1)
Quarter: 2017Q4

REPORT INFORMATION
  Report Type: Spontaneous
  Country: US (occurrence: None)
  Receive Date: 20171116
  Receipt Date: 20171116
  Transmission Date: 20180321
  Serious: Yes (Hospitalization)
  Sender: FDA-Public Use
  Company Number: None

PATIENT
  Age: 59 Year
  Sex: Male

DRUGS (1)
  1. OPSUMIT [Suspect]
     Active Substance: MACITENTAN
     Indication: PULMONARY ARTERIAL HYPERTENSION
     Route: 048
     Dates: start: 20151110

REACTIONS (8)
  - Subdural haemorrhage [None]
  - Hemiparesis [None]
  - White blood cell count increased [None]
  - Pneumonia [None]
  - Brain midline shift [None]
  - Fatigue [None]
  - Headache [None]
  - Dysarthria [None]

NARRATIVE: CASE EVENT DATE: 20171019
